FAERS Safety Report 24753228 (Version 1)
Quarter: 2024Q4

REPORT INFORMATION
  Report Type: Report from Study
  Country: US (occurrence: US)
  Receive Date: 20241219
  Receipt Date: 20241219
  Transmission Date: 20250114
  Serious: Yes (Other)
  Sender: UCB
  Company Number: US-UCBSA-2024052372

PATIENT
  Sex: Female
  Weight: 168 kg

DRUGS (1)
  1. LACOSAMIDE [Suspect]
     Active Substance: LACOSAMIDE
     Indication: Seizure
     Dosage: 200 MILLIGRAM, 2X/DAY (BID)

REACTIONS (5)
  - Anger [Not Recovered/Not Resolved]
  - Product prescribing error [Unknown]
  - Product distribution issue [Unknown]
  - Therapy interrupted [Unknown]
  - Product availability issue [Unknown]
